FAERS Safety Report 15500862 (Version 2)
Quarter: 2018Q4

REPORT INFORMATION
  Report Type: Report from Study
  Country: US (occurrence: US)
  Receive Date: 20181015
  Receipt Date: 20181031
  Transmission Date: 20190205
  Serious: Yes (Hospitalization, Other)
  Sender: FDA-Public Use
  Company Number: PHHO2013US020092

PATIENT
  Age: 77 Year
  Sex: Female
  Weight: 119.1 kg

DRUGS (10)
  1. GSK2118436 [Suspect]
     Active Substance: DABRAFENIB
     Dosage: 200 MG, UNK
     Route: 048
     Dates: start: 20130528, end: 20130607
  2. GSK2118436 [Suspect]
     Active Substance: DABRAFENIB
     Dosage: 75 MG, UNK
     Route: 048
     Dates: start: 20130618, end: 20130619
  3. GSK2118436 [Suspect]
     Active Substance: DABRAFENIB
     Dosage: 150 MG, UNK
     Route: 048
     Dates: start: 20130623, end: 20130704
  4. GSK1120212 [Suspect]
     Active Substance: TRAMETINIB
     Dosage: 1.5 MG, UNK
     Route: 048
     Dates: start: 20130529, end: 20130608
  5. GSK2118436 [Suspect]
     Active Substance: DABRAFENIB
     Indication: MALIGNANT MELANOMA
     Dosage: 300 MG, UNK
     Route: 048
     Dates: start: 20130423, end: 20130521
  6. GSK1120212 [Suspect]
     Active Substance: TRAMETINIB
     Dosage: 1.5 UNK, UNK
     Route: 048
     Dates: start: 20130613, end: 20130616
  7. GSK1120212 [Suspect]
     Active Substance: TRAMETINIB
     Dosage: 1.0 MG, UNK
     Route: 048
     Dates: start: 20130624, end: 20130705
  8. GSK1120212 [Suspect]
     Active Substance: TRAMETINIB
     Indication: MALIGNANT MELANOMA
     Dosage: 2 MG, UNK
     Route: 048
     Dates: start: 20130424, end: 20130521
  9. GSK1120212 [Suspect]
     Active Substance: TRAMETINIB
     Dosage: 1 UNK, UNK
     Route: 048
     Dates: start: 20130618, end: 20130619
  10. GSK2118436 [Suspect]
     Active Substance: DABRAFENIB
     Dosage: 100 MG, UNK
     Route: 048
     Dates: start: 20130608, end: 20130608

REACTIONS (5)
  - Fatigue [Recovered/Resolved]
  - Hyponatraemia [Recovered/Resolved]
  - Hyponatraemia [Recovered/Resolved]
  - Hyponatraemia [Recovered/Resolved]
  - Hyponatraemia [Recovered/Resolved]

NARRATIVE: CASE EVENT DATE: 20130507
